FAERS Safety Report 24376944 (Version 1)
Quarter: 2024Q3

REPORT INFORMATION
  Report Type: Spontaneous
  Country: US (occurrence: US)
  Receive Date: 20240930
  Receipt Date: 20240930
  Transmission Date: 20241017
  Serious: No
  Sender: MERCK
  Company Number: US-009507513-2409USA009220

PATIENT
  Sex: Female

DRUGS (1)
  1. WINREVAIR [Suspect]
     Active Substance: SOTATERCEPT-CSRK
     Dosage: 0.3 MILLIGRAM/KILOGRAM

REACTIONS (2)
  - Lower limb fracture [Unknown]
  - Fall [Unknown]
